FAERS Safety Report 24245503 (Version 2)
Quarter: 2024Q4

REPORT INFORMATION
  Report Type: Report from Study
  Country: US (occurrence: US)
  Receive Date: 20240824
  Receipt Date: 20241211
  Transmission Date: 20250115
  Serious: Yes (Hospitalization, Other)
  Sender: ABBVIE
  Company Number: US-ABBVIE-5888394

PATIENT
  Age: 87 Year
  Sex: Female

DRUGS (1)
  1. SKYRIZI [Suspect]
     Active Substance: RISANKIZUMAB-RZAA
     Indication: Psoriasis
     Dosage: DOSE AT WEEK 0, THEREAFTER WEEK 4 AND THEN EVERY 12 WEEKS. STRENGTH 150MG/ML
     Route: 058
     Dates: start: 202409, end: 202409

REACTIONS (3)
  - Cerebrovascular accident [Not Recovered/Not Resolved]
  - Adverse reaction [Unknown]
  - Diabetes mellitus [Not Recovered/Not Resolved]

NARRATIVE: CASE EVENT DATE: 20240101
